FAERS Safety Report 23201644 (Version 1)
Quarter: 2023Q4

REPORT INFORMATION
  Report Type: Spontaneous
  Country: US (occurrence: None)
  Receive Date: 20231117
  Receipt Date: 20231117
  Transmission Date: 20240109
  Serious: Yes (Other)
  Sender: FDA-Public Use
  Company Number: None

PATIENT
  Age: 4 Month
  Sex: Female
  Weight: 6.3 kg

DRUGS (1)
  1. INFANTS PAIN AND FEVER [Suspect]
     Active Substance: ACETAMINOPHEN
     Indication: Tongue tie operation
     Dosage: OTHER QUANTITY : 2.5 ML;?FREQUENCY : EVERY 6 HOURS;?
     Route: 048
     Dates: start: 20231101, end: 20231112

REACTIONS (3)
  - Vomiting [None]
  - Diarrhoea [None]
  - Irritability [None]

NARRATIVE: CASE EVENT DATE: 20231108
